FAERS Safety Report 9358650 (Version 1)
Quarter: 2013Q2

REPORT INFORMATION
  Report Type: Spontaneous
  Country: US (occurrence: US)
  Receive Date: 20130620
  Receipt Date: 20130620
  Transmission Date: 20140414
  Serious: Yes (Death)
  Sender: FDA-Public Use
  Company Number: US-GLAXOSMITHKLINE-A1027715A

PATIENT
  Age: 63 Year
  Sex: Male

DRUGS (9)
  1. VOTRIENT [Suspect]
     Indication: METASTASES TO BONE
     Dosage: 800MG PER DAY
     Route: 048
     Dates: start: 20130314
  2. DIGOXIN [Concomitant]
  3. EFFEXOR XR [Concomitant]
  4. AMIODARONE [Concomitant]
  5. MULTIVITAMINS [Concomitant]
  6. CALCIUM [Concomitant]
  7. ALPRAZOLAM [Concomitant]
  8. STOOL SOFTENER [Concomitant]
  9. COUMADIN [Concomitant]

REACTIONS (1)
  - Death [Fatal]
